FAERS Safety Report 8520385-4 (Version None)
Quarter: 2012Q3

REPORT INFORMATION
  Report Type: 
  Country: None (occurrence: None)
  Receive Date: 20120719
  Receipt Date: 20111212
  Transmission Date: 20120928
  Serious: Yes (Death, Hospitalization)
  Sender: FDA-Public Use
  Company Number: DK-GENZYME-FLUD-1001489

PATIENT
  Sex: Male

DRUGS (9)
  1. MABTHERA [Suspect]
     Dosage: EVERY 2 WEEKS, MAINTAINANCE EVERY 2 MONTHS
     Route: 042
     Dates: start: 20100714, end: 20110719
  2. CHLORAMBUCIL [Concomitant]
     Dosage: UNK
     Route: 065
     Dates: start: 20090602, end: 20110816
  3. MABTHERA [Suspect]
     Indication: CHRONIC LYMPHOCYTIC LEUKAEMIA REFRACTORY
     Dosage: 230 DF, Q2W
     Route: 042
     Dates: start: 20070220, end: 20070314
  4. CYCLOPHOSPHAMIDE [Suspect]
     Indication: HAEMOLYSIS
     Dosage: UNK
     Route: 065
  5. CHLORAMBUCIL [Concomitant]
     Indication: CHRONIC LYMPHOCYTIC LEUKAEMIA
     Dosage: 4 MG, UNK
     Route: 048
     Dates: start: 20021104, end: 20040906
  6. PREDNISOLONE [Concomitant]
     Indication: HAEMOLYSIS
     Dosage: 75 MG, UNK
     Route: 048
     Dates: start: 20030416, end: 20030910
  7. MABTHERA [Suspect]
     Indication: HAEMOLYSIS
     Dosage: Q4W
     Route: 042
     Dates: start: 20090628, end: 20091117
  8. FLUDARA [Suspect]
     Indication: CHRONIC LYMPHOCYTIC LEUKAEMIA
     Dosage: UNK
     Route: 065
  9. CYCLOPHOSPHAMIDE [Suspect]
     Indication: CHRONIC LYMPHOCYTIC LEUKAEMIA
     Dosage: 100 MG, UNK
     Route: 048
     Dates: start: 20070220, end: 20070529

REACTIONS (5)
  - TREMOR [None]
  - MUSCULAR WEAKNESS [None]
  - PROGRESSIVE MULTIFOCAL LEUKOENCEPHALOPATHY [None]
  - COORDINATION ABNORMAL [None]
  - PARAESTHESIA [None]
